FAERS Safety Report 25804908 (Version 1)
Quarter: 2025Q3

REPORT INFORMATION
  Report Type: Spontaneous
  Country: US (occurrence: US)
  Receive Date: 20250916
  Receipt Date: 20250916
  Transmission Date: 20251021
  Serious: Yes (Other)
  Sender: BAXTER
  Company Number: US-BAXTER-2025BAX021076

PATIENT
  Sex: Female

DRUGS (3)
  1. CLINOLIPID [Suspect]
     Active Substance: OLIVE OIL\SOYBEAN OIL
     Indication: Parenteral nutrition
     Dosage: 50 GM DAILY ({ 1 GM/KG/D)
     Route: 065
  2. CLINOLIPID [Suspect]
     Active Substance: OLIVE OIL\SOYBEAN OIL
     Dosage: 50 G, 3X A WEEK
     Route: 065
  3. URSODIOL [Concomitant]
     Active Substance: URSODIOL
     Route: 065

REACTIONS (3)
  - Cholestasis [Unknown]
  - Liver function test increased [Unknown]
  - Blood bilirubin increased [Unknown]
